FAERS Safety Report 9752335 (Version 2)
Quarter: 2014Q1

REPORT INFORMATION
  Report Type: Spontaneous
  Country: IT (occurrence: None)
  Receive Date: 20131211
  Receipt Date: 20140131
  Transmission Date: 20141002
  Serious: Yes (Other)
  Sender: FDA-Public Use
  Company Number: AUR-APL-2013-10212

PATIENT
  Age: 71 Year
  Sex: Female

DRUGS (8)
  1. LEVOFLOXACIN [Suspect]
     Indication: EAR INFECTION
     Route: 048
     Dates: start: 20131101, end: 20131104
  2. EUTIROX (LEVOTHYROXINE SODIUM) [Concomitant]
  3. FOLINA (FOLIC ACID) [Concomitant]
  4. DILATREND (CARVEDILOL) [Concomitant]
  5. ENAPREN (ENALAPRIL MALEATE) [Concomitant]
  6. LASIX (FUROSEMIDE) [Concomitant]
  7. AMLODIPINE BESYLATE (AMLODIPINE BESILATE) [Concomitant]
  8. ALLOPURINOL (ALLOPURINOL) [Concomitant]

REACTIONS (4)
  - Asthenia [None]
  - Hallucination [None]
  - Insomnia [None]
  - Self-medication [None]
